FAERS Safety Report 10559666 (Version 2)
Quarter: 2014Q4

REPORT INFORMATION
  Report Type: Report from Study
  Country: US (occurrence: US)
  Receive Date: 20141103
  Receipt Date: 20141209
  Transmission Date: 20150529
  Serious: Yes (Hospitalization, Other)
  Sender: FDA-Public Use
  Company Number: US-CELGENE-USA-2014103172

PATIENT
  Age: 76 Year

DRUGS (2)
  1. DECADRON [Suspect]
     Active Substance: DEXAMETHASONE
     Indication: PLASMA CELL MYELOMA
     Route: 048
     Dates: start: 20110801, end: 20130109
  2. REVLIMID [Suspect]
     Active Substance: LENALIDOMIDE
     Indication: PLASMA CELL MYELOMA
     Route: 048
     Dates: start: 20111128, end: 20130101

REACTIONS (8)
  - Hypophagia [Unknown]
  - Fall [Unknown]
  - International normalised ratio increased [Unknown]
  - Blood pressure decreased [Unknown]
  - Asthenia [Unknown]
  - Fall [Unknown]
  - Rotator cuff syndrome [Unknown]
  - Syncope [Unknown]

NARRATIVE: CASE EVENT DATE: 20120317
